FAERS Safety Report 13672341 (Version 2)
Quarter: 2018Q2

REPORT INFORMATION
  Report Type: Report from Study
  Country: US (occurrence: BR)
  Receive Date: 20170620
  Receipt Date: 20180409
  Transmission Date: 20180711
  Serious: Yes (Other)
  Sender: FDA-Public Use
  Company Number: US-SUNOVION-2017SUN002528

PATIENT
  Sex: Male
  Weight: 75 kg

DRUGS (7)
  1. INDACATEROL AND GLYCOPYRROLATE [Suspect]
     Active Substance: GLYCOPYRROLATE\INDACATEROL MALEATE
     Indication: CHRONIC OBSTRUCTIVE PULMONARY DISEASE
     Dosage: 1 DF (50 UG OF GLYCOPYRRONIUM/ 110 UG BROMIDE INDACATEROL) QD
     Route: 055
     Dates: start: 201704
  2. INDACATEROL AND GLYCOPYRROLATE [Suspect]
     Active Substance: GLYCOPYRROLATE\INDACATEROL MALEATE
     Indication: PULMONARY FUNCTION TEST DECREASED
     Dosage: 1 DF (50 UG OF GLYCOPYRRONIUM/ 110 UG BROMIDE INDACATEROL) QD
     Route: 055
     Dates: start: 201706
  3. LOSARTAN. [Concomitant]
     Active Substance: LOSARTAN
  4. FLUIMUCIL [Concomitant]
     Active Substance: ACETYLCYSTEINE
  5. ADDERA D3 [Concomitant]
     Active Substance: CHOLECALCIFEROL
  6. VASLIP [Concomitant]
     Dosage: UNK
     Dates: start: 2017
  7. PIDOMAG B3 [Concomitant]
     Dosage: UNK
     Dates: start: 2017

REACTIONS (4)
  - Arrhythmia [Recovering/Resolving]
  - Pneumonia [Unknown]
  - Gastrooesophageal reflux disease [Recovering/Resolving]
  - Myocardial infarction [Recovering/Resolving]

NARRATIVE: CASE EVENT DATE: 2017
